FAERS Safety Report 17108549 (Version 1)
Quarter: 2019Q4

REPORT INFORMATION
  Report Type: Spontaneous
  Country: PL (occurrence: PL)
  Receive Date: 20191203
  Receipt Date: 20191203
  Transmission Date: 20200122
  Serious: Yes (Other)
  Sender: FDA-Public Use
  Company Number: NVSC2019PL053091

PATIENT
  Age: 52 Year
  Sex: Male

DRUGS (4)
  1. 5 FLUORO URACIL [Concomitant]
     Active Substance: FLUOROURACIL
     Indication: COLORECTAL CANCER METASTATIC
     Dosage: UNK UNK, BIW
     Route: 065
     Dates: start: 2018
  2. OXALIPLATIN. [Suspect]
     Active Substance: OXALIPLATIN
     Indication: COLORECTAL CANCER METASTATIC
     Dosage: 1 DF, BIW
     Route: 065
     Dates: start: 2018
  3. FOLINIC ACID [Concomitant]
     Active Substance: LEUCOVORIN
     Indication: COLORECTAL CANCER METASTATIC
     Dosage: 1 DF, BIW
     Route: 065
     Dates: start: 2018
  4. PANITUMUMAB [Suspect]
     Active Substance: PANITUMUMAB
     Indication: COLORECTAL CANCER METASTATIC
     Dosage: 1 DF, BIW
     Route: 065
     Dates: start: 2018

REACTIONS (6)
  - Metastases to liver [Unknown]
  - Polyneuropathy [Unknown]
  - Leukopenia [Unknown]
  - Lymphadenopathy [Unknown]
  - Rash pustular [Unknown]
  - Neutropenia [Unknown]

NARRATIVE: CASE EVENT DATE: 201904
